FAERS Safety Report 6788303-7 (Version None)
Quarter: 2010Q2

REPORT INFORMATION
  Report Type: 
  Country: None (occurrence: None)
  Receive Date: 20100623
  Receipt Date: 20080916
  Transmission Date: 20101027
  Serious: Yes (Other)
  Sender: FDA-Public Use
  Company Number: US-PFIZER INC-2008015405

PATIENT
  Sex: Male
  Weight: 75.8 kg

DRUGS (1)
  1. SUTENT [Suspect]
     Indication: METASTATIC RENAL CELL CARCINOMA
     Dates: start: 20080131, end: 20080315

REACTIONS (2)
  - PAIN IN EXTREMITY [None]
  - YELLOW SKIN [None]
